FAERS Safety Report 22343745 (Version 1)
Quarter: 2023Q2

REPORT INFORMATION
  Report Type: Spontaneous
  Country: CN (occurrence: CN)
  Receive Date: 20230519
  Receipt Date: 20230519
  Transmission Date: 20230721
  Serious: Yes (Hospitalization, Other)
  Sender: FDA-Public Use
  Company Number: CN-ROCHE-3345950

PATIENT
  Age: 81 Year
  Sex: Female
  Weight: 42 kg

DRUGS (2)
  1. CAPECITABINE [Suspect]
     Active Substance: CAPECITABINE
     Indication: Gastric cancer
     Dosage: TWICE A DAY?DAILY DOSE: 2 GRAM
     Route: 048
     Dates: start: 20230307, end: 20230420
  2. SINTILIMAB [Suspect]
     Active Substance: SINTILIMAB
     Indication: Gastric cancer
     Dosage: IV DRIP?DAILY DOSE: 200 MILLIGRAM
     Route: 042
     Dates: start: 20230307, end: 20230407

REACTIONS (8)
  - Asthenia [Recovering/Resolving]
  - Myelosuppression [Recovering/Resolving]
  - Platelet count decreased [Recovered/Resolved]
  - Haemoglobin decreased [Recovering/Resolving]
  - Ascites [Unknown]
  - Atelectasis [Unknown]
  - Cachexia [Unknown]
  - Anaemia [Recovering/Resolving]

NARRATIVE: CASE EVENT DATE: 20230427
